FAERS Safety Report 10914638 (Version 1)
Quarter: 2015Q1

REPORT INFORMATION
  Report Type: Spontaneous
  Country: DK (occurrence: DK)
  Receive Date: 20150313
  Receipt Date: 20150313
  Transmission Date: 20150721
  Serious: Yes (Hospitalization)
  Sender: FDA-Public Use
  Company Number: DK-SA-2015SA028512

PATIENT
  Age: 37 Year
  Sex: Female

DRUGS (3)
  1. TAXOTERE [Suspect]
     Active Substance: DOCETAXEL
     Indication: INVASIVE DUCTAL BREAST CARCINOMA
     Dosage: DOSIS: 175 MG, SERIE 4-6.
     Route: 065
     Dates: start: 2011, end: 2011
  2. NEULASTA [Concomitant]
     Active Substance: PEGFILGRASTIM
     Indication: INVASIVE DUCTAL BREAST CARCINOMA
     Dosage: STRENGTH: 6 MG
     Dates: start: 2011, end: 2011
  3. MERONEM [Concomitant]
     Active Substance: MEROPENEM
     Indication: INFECTION
     Dates: start: 201107

REACTIONS (10)
  - Muscular weakness [Not Recovered/Not Resolved]
  - Skin exfoliation [Recovered/Resolved]
  - Decreased vibratory sense [Not Recovered/Not Resolved]
  - Neuropathy peripheral [Not Recovered/Not Resolved]
  - Polyneuropathy [Not Recovered/Not Resolved]
  - Pyrexia [Recovered/Resolved]
  - Fungal infection [Recovered/Resolved]
  - Sensory disturbance [Not Recovered/Not Resolved]
  - Balance disorder [Not Recovered/Not Resolved]
  - Feeling abnormal [Unknown]

NARRATIVE: CASE EVENT DATE: 2011
